FAERS Safety Report 4720918-X (Version None)
Quarter: 2005Q3

REPORT INFORMATION
  Report Type: 
  Country: None (occurrence: None)
  Receive Date: 20050720
  Receipt Date: 20050715
  Transmission Date: 20060218
  Serious: Yes (Other)
  Sender: FDA-Public Use
  Company Number: 200512173GDS

PATIENT
  Age: 67 Year
  Sex: Male

DRUGS (6)
  1. ASPIRIN [Suspect]
     Dosage: ORAL
     Route: 048
     Dates: end: 20050501
  2. DICLOFENAC SODIUM [Suspect]
     Dosage: ORAL
     Route: 048
     Dates: end: 20050501
  3. PROCAINE PENICILLIN G [Suspect]
     Indication: SYPHILIS
     Dosage: OW, INTRAVENOUS
     Route: 042
     Dates: start: 20050201, end: 20050331
  4. PIPERACILLIN [Suspect]
     Indication: SYPHILIS
     Dosage: 2400000 U, TOTAL DAILY, INTRAVENOUS
     Route: 042
     Dates: start: 20050201, end: 20050331
  5. PAROXETINE HCL [Concomitant]
  6. TERBINAFINE [Concomitant]

REACTIONS (2)
  - LEUKOPENIA [None]
  - NEUTROPENIA [None]
